FAERS Safety Report 24528954 (Version 1)
Quarter: 2024Q4

REPORT INFORMATION
  Report Type: Spontaneous
  Country: IN (occurrence: None)
  Receive Date: 20241018
  Receipt Date: 20241018
  Transmission Date: 20250115
  Serious: Yes (Disabling, Other)
  Sender: Public
  Company Number: None

PATIENT
  Age: 37 Year
  Sex: Male
  Weight: 100 kg

DRUGS (2)
  1. QUETIAPINE [Suspect]
     Active Substance: QUETIAPINE
     Indication: Anxiety
  2. QUETIAPINE [Suspect]
     Active Substance: QUETIAPINE
     Indication: Drug dependence

REACTIONS (3)
  - Weight increased [None]
  - Food craving [None]
  - Antisocial behaviour [None]

NARRATIVE: CASE EVENT DATE: 20240905
